FAERS Safety Report 6409248-8 (Version None)
Quarter: 2009Q4

REPORT INFORMATION
  Report Type: 
  Country: None (occurrence: None)
  Receive Date: 20091021
  Receipt Date: 20091013
  Transmission Date: 20100525
  Serious: Yes (Hospitalization, Other)
  Sender: FDA-Public Use
  Company Number: US-GENENTECH-292338

PATIENT
  Sex: Male
  Weight: 66.7 kg

DRUGS (1)
  1. RITUXAN [Suspect]
     Indication: HEART TRANSPLANT REJECTION
     Dosage: 650 MG, UNK
     Route: 042
     Dates: start: 20091008

REACTIONS (2)
  - CARDIAC ARREST [None]
  - INFUSION RELATED REACTION [None]
